FAERS Safety Report 13402100 (Version 2)
Quarter: 2017Q2

REPORT INFORMATION
  Report Type: Spontaneous
  Country: US (occurrence: US)
  Receive Date: 20170404
  Receipt Date: 20170608
  Transmission Date: 20170830
  Serious: Yes (Other)
  Sender: FDA-Public Use
  Company Number: US-GALDERMA-US17002060

PATIENT
  Age: 28 Year
  Sex: Female
  Weight: 74.84 kg

DRUGS (3)
  1. CETAPHIL GENTLE SKIN CLEANSER (DIFFERIN BALANCING CLEANSER) [Suspect]
     Active Substance: COSMETICS
     Indication: ACNE
     Route: 061
     Dates: start: 201701, end: 20170315
  2. DIFFERIN GEL [Suspect]
     Active Substance: ADAPALENE
     Indication: ACNE
     Dosage: 0.1%
     Route: 061
     Dates: start: 201701, end: 20170315
  3. CETAPHIL MOISTURIZING LOTION (DIFFERIN BALANCING MOISTURIZER) [Suspect]
     Active Substance: COSMETICS
     Indication: ACNE
     Route: 061
     Dates: start: 201701, end: 20170315

REACTIONS (11)
  - Photophobia [Unknown]
  - Idiopathic intracranial hypertension [Unknown]
  - Ocular vascular disorder [Unknown]
  - Intracranial pressure increased [Unknown]
  - Road traffic accident [Recovered/Resolved]
  - Papilloedema [Unknown]
  - Vision blurred [Not Recovered/Not Resolved]
  - Headache [Not Recovered/Not Resolved]
  - Blindness [Unknown]
  - Limb injury [Unknown]
  - Myalgia [Unknown]

NARRATIVE: CASE EVENT DATE: 20170110
